FAERS Safety Report 6403177-1 (Version None)
Quarter: 2009Q4

REPORT INFORMATION
  Report Type: 
  Country: None (occurrence: None)
  Receive Date: 20091016
  Receipt Date: 20091005
  Transmission Date: 20100525
  Serious: Yes (Hospitalization)
  Sender: FDA-Public Use
  Company Number: AR-AMGEN-US369084

PATIENT
  Age: 27 Year
  Sex: Female

DRUGS (7)
  1. ENBREL [Suspect]
     Indication: JUVENILE ARTHRITIS
     Route: 058
     Dates: start: 20071018, end: 20090923
  2. ACETAMINOPHEN [Concomitant]
     Indication: PAIN
     Dosage: 1000 MG ACCORDING TO PAIN
     Route: 048
  3. ACETAMINOPHEN [Concomitant]
     Indication: INFLAMMATION
  4. DICLOFENAC [Concomitant]
     Indication: PAIN
     Dosage: 50 TO 100 MG ACCORDING TO PAIN
     Route: 048
  5. DICLOFENAC [Concomitant]
     Indication: INFLAMMATION
  6. METHOTREXATE [Concomitant]
     Indication: RHEUMATOID ARTHRITIS
     Route: 065
  7. FOLIC ACID [Concomitant]
     Indication: RHEUMATOID ARTHRITIS
     Route: 065

REACTIONS (2)
  - DRUG EXPOSURE DURING PREGNANCY [None]
  - HIP ARTHROPLASTY [None]
